FAERS Safety Report 8484121-2 (Version None)
Quarter: 2012Q3

REPORT INFORMATION
  Report Type: 
  Country: None (occurrence: None)
  Receive Date: 20120703
  Receipt Date: 20120622
  Transmission Date: 20120928
  Serious: Yes (Hospitalization)
  Sender: FDA-Public Use
  Company Number: US-SANOFI-AVENTIS-2012SA045431

PATIENT
  Sex: Female

DRUGS (3)
  1. DRONEDARONE HCL [Concomitant]
  2. LASIX [Suspect]
     Route: 048
  3. DABIGATRAN ETEXILATE [Suspect]
     Indication: CEREBROVASCULAR ACCIDENT PROPHYLAXIS
     Route: 048

REACTIONS (1)
  - RENAL FAILURE ACUTE [None]
